FAERS Safety Report 7985990-2 (Version None)
Quarter: 2011Q4

REPORT INFORMATION
  Report Type: 
  Country: None (occurrence: None)
  Receive Date: 20111216
  Receipt Date: 20111207
  Transmission Date: 20120403
  Serious: Yes (Hospitalization)
  Sender: FDA-Public Use
  Company Number: JP-MERCK-1010USA02804

PATIENT
  Age: 81 Year
  Sex: Female
  Weight: 36 kg

DRUGS (4)
  1. FOSAMAX [Suspect]
     Indication: OSTEOPOROSIS
     Route: 048
     Dates: start: 20071217, end: 20100307
  2. VITAMIN D (UNSPECIFIED) [Concomitant]
     Route: 048
  3. RISEDRONATE SODIUM [Suspect]
     Indication: OSTEOPOROSIS
     Route: 048
     Dates: start: 20040716, end: 20071128
  4. CHOLECALCIFEROL AND VITAMIN A [Concomitant]
     Indication: OSTEOPOROSIS
     Dosage: DAILY DOSE UNKNOWN
     Route: 048

REACTIONS (5)
  - GROIN PAIN [None]
  - FALL [None]
  - SPINAL COMPRESSION FRACTURE [None]
  - FEMUR FRACTURE [None]
  - LOW TURNOVER OSTEOPATHY [None]
